FAERS Safety Report 8392910-8 (Version None)
Quarter: 2012Q2

REPORT INFORMATION
  Report Type: 
  Country: None (occurrence: None)
  Receive Date: 20120525
  Receipt Date: 20120525
  Transmission Date: 20120825
  Serious: No
  Sender: FDA-Public Use
  Company Number: None

PATIENT
  Age: 59 Year
  Sex: Female

DRUGS (1)
  1. ZELBORAF [Suspect]
     Dosage: 960MG BID PO
     Route: 048
     Dates: start: 20120302, end: 20120522

REACTIONS (2)
  - RASH [None]
  - SKIN EXFOLIATION [None]
